FAERS Safety Report 14800604 (Version 2)
Quarter: 2018Q2

REPORT INFORMATION
  Report Type: Spontaneous
  Country: JP (occurrence: JP)
  Receive Date: 20180424
  Receipt Date: 20180521
  Transmission Date: 20180711
  Serious: Yes (Other)
  Sender: FDA-Public Use
  Company Number: PHJP2018JP009153

PATIENT
  Age: 76 Year
  Sex: Female

DRUGS (1)
  1. NEORAL [Suspect]
     Active Substance: CYCLOSPORINE
     Indication: PUSTULAR PSORIASIS
     Dosage: 200 MG, UNK
     Route: 048
     Dates: start: 20180402, end: 20180418

REACTIONS (5)
  - Pleural effusion [Recovered/Resolved]
  - Pustular psoriasis [Recovering/Resolving]
  - Right ventricular failure [Recovered/Resolved]
  - Disease progression [Recovering/Resolving]
  - Drug effect incomplete [Recovered/Resolved]

NARRATIVE: CASE EVENT DATE: 20180418
